FAERS Safety Report 7723315-8 (Version None)
Quarter: 2011Q3

REPORT INFORMATION
  Report Type: 
  Country: None (occurrence: None)
  Receive Date: 20110901
  Receipt Date: 20110901
  Transmission Date: 20111222
  Serious: No
  Sender: FDA-Public Use
  Company Number: None

PATIENT
  Sex: Female
  Weight: 73.481 kg

DRUGS (1)
  1. COPAXONE [Suspect]
     Indication: MULTIPLE SCLEROSIS
     Dosage: 1 ML
     Route: 058
     Dates: start: 20091211, end: 20110825

REACTIONS (10)
  - FEELING ABNORMAL [None]
  - HEADACHE [None]
  - CHILLS [None]
  - HYPOAESTHESIA ORAL [None]
  - NASAL OEDEMA [None]
  - DYSPNOEA [None]
  - DEAFNESS TRANSITORY [None]
  - TREMOR [None]
  - EYE SWELLING [None]
  - VIITH NERVE PARALYSIS [None]
